FAERS Safety Report 8869025 (Version 1)
Quarter: 2012Q4

REPORT INFORMATION
  Report Type: 
  Country: US (occurrence: US)
  Receive Date: 20121027
  Receipt Date: 20121027
  Transmission Date: 20130627
  Serious: Yes (Other)
  Sender: FDA-Public Use
  Company Number: US-009507513-2012SP023214

PATIENT
  Sex: Female

DRUGS (3)
  1. RIBAVIRIN [Suspect]
     Indication: HEPATITIS C
     Dosage: UNK UNK, Unknown
     Route: 065
     Dates: start: 20111115
  2. VICTRELIS [Suspect]
     Indication: HEPATITIS C
     Dosage: UNK
     Route: 065
     Dates: start: 20111220, end: 20120820
  3. PEGASYS [Suspect]
     Indication: HEPATITIS C
     Dosage: UNK UNK, Unknown
     Route: 065
     Dates: start: 20111115, end: 20121016

REACTIONS (8)
  - Dehydration [Unknown]
  - Nocturia [Unknown]
  - Nasopharyngitis [Unknown]
  - Bronchitis [Unknown]
  - Hypophagia [Unknown]
  - Weight decreased [Unknown]
  - Fatigue [Unknown]
  - Memory impairment [Not Recovered/Not Resolved]
